FAERS Safety Report 19115805 (Version 3)
Quarter: 2021Q3

REPORT INFORMATION
  Report Type: Spontaneous
  Country: US (occurrence: US)
  Receive Date: 20210409
  Receipt Date: 20210910
  Transmission Date: 20211014
  Serious: Yes (Death, Other)
  Sender: FDA-Public Use
  Company Number: US-SA-2021SA115252

PATIENT
  Sex: Male

DRUGS (15)
  1. BUPROPION HCL [Concomitant]
     Active Substance: BUPROPION HYDROCHLORIDE
  2. ESOMEPRAZOLE. [Concomitant]
     Active Substance: ESOMEPRAZOLE MAGNESIUM
  3. CLOPIDOGREL [Concomitant]
     Active Substance: CLOPIDOGREL BISULFATE
  4. FELODIPINE. [Concomitant]
     Active Substance: FELODIPINE
  5. DUPIXENT [Suspect]
     Active Substance: DUPILUMAB
     Indication: STEROID THERAPY
     Dosage: 200 MG
  6. TOUJEO MAX [Concomitant]
     Active Substance: INSULIN GLARGINE
     Dosage: UNK
  7. NOVOLOG [Concomitant]
     Active Substance: INSULIN ASPART
  8. DUPIXENT [Suspect]
     Active Substance: DUPILUMAB
     Dosage: 300 MG, QOW
     Route: 058
  9. HYDROXYZINE [Concomitant]
     Active Substance: HYDROXYZINE HYDROCHLORIDE
  10. LISINOPRIL. [Concomitant]
     Active Substance: LISINOPRIL
  11. TORSEMIDE. [Concomitant]
     Active Substance: TORSEMIDE
  12. VENLAFAXINE [Concomitant]
     Active Substance: VENLAFAXINE HYDROCHLORIDE
     Dosage: UNK
  13. CARVEDILOL. [Concomitant]
     Active Substance: CARVEDILOL
  14. ALPRAZOLAM. [Concomitant]
     Active Substance: ALPRAZOLAM
  15. COMBIVENT RESPIMAT [Concomitant]
     Active Substance: ALBUTEROL SULFATE\IPRATROPIUM BROMIDE

REACTIONS (6)
  - Condition aggravated [Unknown]
  - Decreased activity [Unknown]
  - Death [Fatal]
  - Nasal congestion [Unknown]
  - Product use in unapproved indication [Unknown]
  - Chronic obstructive pulmonary disease [Unknown]
